FAERS Safety Report 4570260-5 (Version None)
Quarter: 2005Q1

REPORT INFORMATION
  Report Type: 
  Country: None (occurrence: None)
  Receive Date: 20050202
  Receipt Date: 20050120
  Transmission Date: 20050727
  Serious: Yes (Hospitalization, Congenital Anomaly)
  Sender: FDA-Public Use
  Company Number: 2005018255

PATIENT
  Age: 72 Year
  Sex: Female

DRUGS (4)
  1. CELEBREX [Suspect]
     Indication: RHEUMATOID ARTHRITIS
     Dosage: ORAL
     Route: 048
     Dates: end: 20041201
  2. ATORVASTATIN                             (ATORVASTATIN) [Concomitant]
  3. CALCIUM                           (CALCIUM) [Concomitant]
  4. GLUCOSAMINE W/CHONDROITIN SULFATES [Concomitant]

REACTIONS (3)
  - CARDIAC DISORDER [None]
  - HEART RATE INCREASED [None]
  - PERICARDIAL EFFUSION [None]
